FAERS Safety Report 8262677-2 (Version None)
Quarter: 2012Q2

REPORT INFORMATION
  Report Type: 
  Country: None (occurrence: None)
  Receive Date: 20120405
  Receipt Date: 20120326
  Transmission Date: 20120825
  Serious: Yes (Other)
  Sender: FDA-Public Use
  Company Number: JP-SANOFI-AVENTIS-2012SA015143

PATIENT
  Age: 66 Year
  Sex: Male
  Weight: 67 kg

DRUGS (14)
  1. ACETAMINOPHEN [Suspect]
     Indication: NASOPHARYNGEAL CANCER
     Route: 048
     Dates: start: 20120106, end: 20120125
  2. LOXONIN [Suspect]
     Indication: NASOPHARYNGEAL CANCER
     Route: 048
     Dates: start: 20120131, end: 20120212
  3. ZOSYN [Suspect]
     Route: 041
     Dates: start: 20120303, end: 20120304
  4. URSO 250 [Concomitant]
     Dates: start: 20120213
  5. ZOSYN [Suspect]
     Route: 041
     Dates: start: 20120212, end: 20120218
  6. CEFAZOLIN SODIUM [Concomitant]
     Dates: start: 20120212
  7. ZOLPIDEM [Suspect]
     Indication: INSOMNIA
     Route: 048
     Dates: start: 20120128, end: 20120212
  8. MAGNESIUM SULFATE [Concomitant]
     Indication: CONSTIPATION
     Dates: start: 20120203, end: 20120212
  9. ACETYLCYSTEINE [Concomitant]
     Route: 048
     Dates: start: 20120213
  10. FAMOTIDINE [Suspect]
     Route: 048
     Dates: start: 20120213, end: 20120214
  11. UFT [Suspect]
     Indication: NASOPHARYNGEAL CANCER
     Route: 048
     Dates: start: 20120120, end: 20120212
  12. FAMOTIDINE [Suspect]
     Route: 048
     Dates: start: 20120212, end: 20120212
  13. SOLANTAL [Suspect]
     Indication: NASOPHARYNGEAL CANCER
     Route: 048
     Dates: start: 20120128, end: 20120212
  14. ACETAMINOPHEN [Suspect]
     Route: 048
     Dates: start: 20120126, end: 20120212

REACTIONS (6)
  - PANCYTOPENIA [None]
  - RENAL IMPAIRMENT [None]
  - HEPATIC FUNCTION ABNORMAL [None]
  - DIARRHOEA [None]
  - RASH [None]
  - PYREXIA [None]
